FAERS Safety Report 16321708 (Version 1)
Quarter: 2019Q2

REPORT INFORMATION
  Report Type: Report from Study
  Country: US (occurrence: US)
  Receive Date: 20190516
  Receipt Date: 20190516
  Transmission Date: 20190711
  Serious: Yes (Death)
  Sender: FDA-Public Use
  Company Number: US-PFIZER INC-2019208410

PATIENT
  Age: 18 Year

DRUGS (8)
  1. DOXORUBICIN HCL [Suspect]
     Active Substance: DOXORUBICIN HYDROCHLORIDE
     Indication: HODGKIN^S DISEASE
     Dosage: UNK, CYCLIC (8X, INDUCTION CHEMOTHERAPY, CYCLES)HIGH-DOSE
  2. VINBLASTINE [Suspect]
     Active Substance: VINBLASTINE
     Indication: HODGKIN^S DISEASE
     Dosage: UNK, CYCLIC ( 8X, INDUCTION CHEMOTHERAPY)HIGH-DOSE
  3. DACARBAZINE. [Suspect]
     Active Substance: DACARBAZINE
     Indication: HODGKIN^S DISEASE
     Dosage: UNK, CYCLIC  (8X, INDUCTION CHEMOTHERAPY)HIGH-DOSE
  4. PREDNISONE. [Suspect]
     Active Substance: PREDNISONE
     Indication: HODGKIN^S DISEASE
     Dosage: UNK, CYCLIC  (2X, SALVAGE CHEMOTHERAPY)HIGH-DOSE
  5. NITROGEN MUSTARD [Suspect]
     Active Substance: MECHLORETHAMINE OXIDE HYDROCHLORIDE
     Indication: HODGKIN^S DISEASE
     Dosage: UNK, CYCLIC (2X, SALVAGE CHEMOTHERAPY)HIGH-DOSE
  6. BLEOMYCIN SULFATE [Suspect]
     Active Substance: BLEOMYCIN SULFATE
     Indication: HODGKIN^S DISEASE
     Dosage: UNK, CYCLIC ( 8X, INDUCTION CHEMOTHERAPY)HIGH-DOSE
  7. PROCARBAZINE [Suspect]
     Active Substance: PROCARBAZINE
     Indication: HODGKIN^S DISEASE
     Dosage: UNK, CYCLIC (2X, SALVAGE CHEMOTHERAPY)HIGH-DOSE
  8. VINCRISTINE SULFATE. [Suspect]
     Active Substance: VINCRISTINE SULFATE
     Indication: HODGKIN^S DISEASE
     Dosage: UNK (2X, SALVAGE CHEMOTHERAPY)HIGH-DOSE

REACTIONS (2)
  - Myelodysplastic syndrome [Fatal]
  - Second primary malignancy [Fatal]
